FAERS Safety Report 20409619 (Version 2)
Quarter: 2022Q2

REPORT INFORMATION
  Report Type: Spontaneous
  Country: JP (occurrence: JP)
  Receive Date: 20220201
  Receipt Date: 20220601
  Transmission Date: 20220721
  Serious: No
  Sender: FDA-Public Use
  Company Number: JP-GLAXOSMITHKLINE-JP2022JPN013366

PATIENT

DRUGS (9)
  1. SOTROVIMAB [Suspect]
     Active Substance: SOTROVIMAB
     Indication: COVID-19
     Dosage: 500 MG
     Route: 042
     Dates: start: 20220124, end: 20220124
  2. FAMOTIDINE [Suspect]
     Active Substance: FAMOTIDINE
     Indication: Abdominal pain upper
     Dosage: 40 MG/DAY
     Route: 048
     Dates: start: 20220123
  3. TRANSAMIN [Suspect]
     Active Substance: TRANEXAMIC ACID
     Indication: Haemorrhage
     Dosage: UNK
     Route: 048
     Dates: start: 20220115
  4. RITODRINE HYDROCHLORIDE [Suspect]
     Active Substance: RITODRINE HYDROCHLORIDE
     Indication: Premature labour
     Dosage: 15 TO 20 MG/DAY
     Route: 048
     Dates: start: 20220112
  5. FERRIC CITRATE ANHYDROUS [Suspect]
     Active Substance: FERRIC CITRATE ANHYDROUS
     Indication: Anaemia
     Dosage: 500 MG/DAY
     Route: 048
     Dates: start: 20220123
  6. DIMEMORFAN [Suspect]
     Active Substance: DIMEMORFAN
     Indication: Cough
     Dosage: 30 MG/DAY
     Route: 048
     Dates: start: 20220123
  7. CARBOCYSTEINE [Suspect]
     Active Substance: CARBOCYSTEINE
     Indication: Productive cough
     Dosage: 1500 MG/DAY
     Route: 048
     Dates: start: 20220123
  8. DEQUALINIUM CHLORIDE [Suspect]
     Active Substance: DEQUALINIUM CHLORIDE
     Indication: Cough
     Dosage: 0.75 MG/DAY
     Route: 048
     Dates: start: 20220123
  9. HEPARIN CALCIUM [Suspect]
     Active Substance: HEPARIN CALCIUM
     Indication: Thrombosis prophylaxis
     Dosage: 10000 ?/DAY
     Route: 058
     Dates: start: 20220123

REACTIONS (1)
  - Exposure during pregnancy [Unknown]
